FAERS Safety Report 4367256-5 (Version None)
Quarter: 2004Q2

REPORT INFORMATION
  Report Type: 
  Country: None (occurrence: None)
  Receive Date: 20040524
  Receipt Date: 20040402
  Transmission Date: 20050107
  Serious: Yes (Life-Threatening, Hospitalization)
  Sender: FDA-Public Use
  Company Number: 2004204579US

PATIENT
  Age: 64 Year
  Sex: Male

DRUGS (1)
  1. BEXTRA [Suspect]
     Indication: OSTEOARTHRITIS
     Dosage: 10 MG, PRN, ORAL
     Route: 048
     Dates: start: 20030101, end: 20040101

REACTIONS (2)
  - ANAPHYLACTIC REACTION [None]
  - RESPIRATION ABNORMAL [None]
